FAERS Safety Report 19102314 (Version 1)
Quarter: 2021Q2

REPORT INFORMATION
  Report Type: Spontaneous
  Country: US (occurrence: US)
  Receive Date: 20210406
  Receipt Date: 20210406
  Transmission Date: 20210717
  Serious: Yes (Other)
  Sender: FDA-Public Use
  Company Number: None

PATIENT
  Sex: Female

DRUGS (2)
  1. APETAMINE [Concomitant]
  2. APETAMIN DIETARY SUPPLEMENT [Suspect]
     Active Substance: CYPROHEPTADINE HYDROCHLORIDE\LYSINE HYDROCHLORIDE\VITAMINS

REACTIONS (18)
  - Rhinitis [None]
  - Nervous system disorder [None]
  - Ocular hyperaemia [None]
  - Somnolence [None]
  - Arthralgia [None]
  - Pain in extremity [None]
  - Grip strength decreased [None]
  - Hypersensitivity [None]
  - Abdominal distension [None]
  - Gait disturbance [None]
  - Eye irritation [None]
  - Hypoaesthesia [None]
  - Chromaturia [None]
  - Sneezing [None]
  - Hyporeflexia [None]
  - Skin discolouration [None]
  - Scar [None]
  - Palpitations [None]

NARRATIVE: CASE EVENT DATE: 20210405
